FAERS Safety Report 22623627 (Version 1)
Quarter: 2023Q2

REPORT INFORMATION
  Report Type: Spontaneous
  Country: US (occurrence: US)
  Receive Date: 20230621
  Receipt Date: 20230621
  Transmission Date: 20230722
  Serious: No
  Sender: FDA-Public Use
  Company Number: US-CIPLA LTD.-2023US03013

PATIENT

DRUGS (1)
  1. LANREOTIDE ACETATE [Suspect]
     Active Substance: LANREOTIDE ACETATE
     Indication: Mesenteric neoplasm
     Dosage: 1 DOSE EVERY 28 DAYS
     Route: 030
     Dates: start: 20230529

REACTIONS (4)
  - Burning sensation [Recovered/Resolved]
  - Pain [Recovered/Resolved]
  - Injection site mass [Not Recovered/Not Resolved]
  - Injection site induration [Unknown]

NARRATIVE: CASE EVENT DATE: 20230529
